FAERS Safety Report 23839387 (Version 1)
Quarter: 2024Q2

REPORT INFORMATION
  Report Type: Spontaneous
  Country: PL (occurrence: PL)
  Receive Date: 20240510
  Receipt Date: 20240510
  Transmission Date: 20240716
  Serious: Yes (Hospitalization)
  Sender: FDA-Public Use
  Company Number: PL-Orion Corporation ORION PHARMA-DEX 2024-0015

PATIENT
  Age: 42 Year
  Sex: Male
  Weight: 132 kg

DRUGS (15)
  1. SEVOFLURANE [Suspect]
     Active Substance: SEVOFLURANE
     Indication: Maintenance of anaesthesia
     Dosage: SEVOFLURANE TITRATED TO BISPECTRAL INDEX VALUES BETWEEN 40 AND 60
     Route: 055
  2. ROCURONIUM [Concomitant]
     Active Substance: ROCURONIUM BROMIDE
     Indication: Hypotonia
     Dosage: DOSED TO KEEP A TRAIN-OF-FOUR RATIO OF 0
     Route: 065
  3. DEXMEDETOMIDINE [Suspect]
     Active Substance: DEXMEDETOMIDINE
     Indication: Sedation
     Route: 050
  4. DEXMEDETOMIDINE [Suspect]
     Active Substance: DEXMEDETOMIDINE
     Indication: Sedation
     Dosage: IN 0.9% NACL UP TO 50 ML IN A SINGLE SYRINGE
     Route: 050
  5. DEXMEDETOMIDINE [Suspect]
     Active Substance: DEXMEDETOMIDINE
     Indication: Sedation
     Dosage: 4 MCG/H
     Route: 050
  6. METAMIZOLE [Concomitant]
     Active Substance: METAMIZOLE
     Indication: Analgesic therapy
     Route: 050
  7. PROPOFOL [Suspect]
     Active Substance: PROPOFOL
     Indication: Induction of anaesthesia
     Route: 050
  8. KETAMINE [Suspect]
     Active Substance: KETAMINE
     Indication: Induction of anaesthesia
     Route: 050
  9. ACETAMINOPHEN [Concomitant]
     Active Substance: ACETAMINOPHEN
     Indication: Analgesic therapy
     Route: 050
  10. LIDOCAINE [Suspect]
     Active Substance: LIDOCAINE
     Indication: Sedation
     Route: 050
  11. LIDOCAINE [Suspect]
     Active Substance: LIDOCAINE
     Indication: Sedation
     Dosage: IN 0.9% NACL UP TO 50 ML IN A SINGLE SYRINGE
     Route: 050
  12. LIDOCAINE [Suspect]
     Active Substance: LIDOCAINE
     Indication: Sedation
     Dosage: 40 MG/H
     Route: 050
  13. BUPIVACAINE [Suspect]
     Active Substance: BUPIVACAINE
     Indication: Anaesthesia
     Dosage: TOTAL VOLUME OF 40 ML 0.25%
     Route: 065
  14. MAGNESIUM SULFATE [Suspect]
     Active Substance: MAGNESIUM SULFATE\MAGNESIUM SULFATE HEPTAHYDRATE
     Indication: Analgesic therapy
     Route: 050
  15. SUGAMMADEX [Concomitant]
     Active Substance: SUGAMMADEX
     Indication: Muscle contracture
     Route: 065

REACTIONS (2)
  - Sedation complication [Recovered/Resolved]
  - Somnolence [Recovered/Resolved]
